FAERS Safety Report 12236704 (Version 2)
Quarter: 2016Q4

REPORT INFORMATION
  Report Type: Spontaneous
  Country: CH (occurrence: CH)
  Receive Date: 20160405
  Receipt Date: 20161104
  Transmission Date: 20170207
  Serious: Yes (Other)
  Sender: FDA-Public Use
  Company Number: CH-AMGEN-CHESP2016039849

PATIENT
  Age: 77 Year
  Sex: Female

DRUGS (3)
  1. VITAMIN D [Concomitant]
     Active Substance: CHOLECALCIFEROL
  2. PROLIA [Suspect]
     Active Substance: DENOSUMAB
     Indication: PROPHYLAXIS
     Dosage: 60 MG, Q6MO
     Route: 065
  3. CALCIUM [Concomitant]
     Active Substance: CALCIUM

REACTIONS (1)
  - Pathological fracture [Unknown]
